FAERS Safety Report 7216009-9 (Version None)
Quarter: 2011Q1

REPORT INFORMATION
  Report Type: 
  Country: None (occurrence: None)
  Receive Date: 20110107
  Receipt Date: 20101224
  Transmission Date: 20110831
  Serious: Yes (Other)
  Sender: FDA-Public Use
  Company Number: PHHY2010JP88212

PATIENT
  Age: 65 Year
  Sex: Male

DRUGS (5)
  1. PREDNISOLONE [Suspect]
     Indication: THYROID CANCER
     Dosage: 100 MG, UNK
  2. DOXORUBICIN HCL [Suspect]
     Indication: THYROID CANCER
     Dosage: 85 MG, UNK
  3. RITUXIMAB [Suspect]
     Indication: THYROID CANCER
     Dosage: 600 MG, UNK
  4. VINCRISTINE [Suspect]
     Indication: THYROID CANCER
     Dosage: 2 MG, UNK
  5. CYCLOPHOSPHAMIDE [Suspect]
     Indication: THYROID CANCER

REACTIONS (3)
  - LISTERIOSIS [None]
  - NEUTROPHIL COUNT DECREASED [None]
  - PYREXIA [None]
